FAERS Safety Report 11918093 (Version 1)
Quarter: 2016Q1

REPORT INFORMATION
  Report Type: Spontaneous
  Country: US (occurrence: US)
  Receive Date: 20160114
  Receipt Date: 20160114
  Transmission Date: 20160526
  Serious: No
  Sender: FDA-Public Use
  Company Number: US-DEP_07652_2015

PATIENT
  Age: 50 Year
  Sex: Female

DRUGS (1)
  1. NUCYNTA [Suspect]
     Active Substance: TAPENTADOL HYDROCHLORIDE
     Indication: PAIN
     Dosage: 100 MG, UNK
     Route: 048

REACTIONS (5)
  - Drug ineffective [Unknown]
  - Dyspnoea [Unknown]
  - Adverse event [Unknown]
  - Panic disorder [Unknown]
  - Anxiety [Unknown]

NARRATIVE: CASE EVENT DATE: 201409
